FAERS Safety Report 5449261-0 (Version None)
Quarter: 2007Q3

REPORT INFORMATION
  Report Type: 
  Country: None (occurrence: None)
  Receive Date: 20070911
  Receipt Date: 20070905
  Transmission Date: 20080115
  Serious: Yes (Other)
  Sender: FDA-Public Use
  Company Number: US-PFIZER INC-2007060398

PATIENT
  Sex: Female
  Weight: 82.6 kg

DRUGS (7)
  1. CELEBREX [Suspect]
     Indication: RHEUMATOID ARTHRITIS
  2. REMICADE [Suspect]
  3. ORENCIA [Suspect]
  4. NEXIUM [Concomitant]
  5. CYTOMEL [Concomitant]
  6. VALIUM [Concomitant]
  7. DARVON [Concomitant]

REACTIONS (8)
  - ALANINE AMINOTRANSFERASE INCREASED [None]
  - ASPARTATE AMINOTRANSFERASE INCREASED [None]
  - DRUG HYPERSENSITIVITY [None]
  - DRUG INEFFECTIVE [None]
  - EXOSTOSIS [None]
  - HEPATIC STEATOSIS [None]
  - OSTEOARTHRITIS [None]
  - ROTATOR CUFF SYNDROME [None]
